FAERS Safety Report 9543766 (Version 1)
Quarter: 2013Q3

REPORT INFORMATION
  Report Type: Spontaneous
  Country: US (occurrence: US)
  Receive Date: 20130923
  Receipt Date: 20130923
  Transmission Date: 20140515
  Serious: Yes (Other)
  Sender: FDA-Public Use
  Company Number: US-TARO-2013P1019426

PATIENT
  Age: 48 Year
  Sex: Female
  Weight: 59.88 kg

DRUGS (18)
  1. CARBAMAZEPINE TABLETS USP 200 MG [Suspect]
     Indication: CONVULSION
     Route: 048
     Dates: start: 201210
  2. CARBAMAZEPINE TABLETS USP 200 MG [Suspect]
     Route: 048
     Dates: start: 201210
  3. TOPIRAMATE TABLETS (SUN PHARMA USA) [Suspect]
     Indication: CONVULSION
     Route: 048
     Dates: start: 201301, end: 2013
  4. TOPIRAMATE TABLETS (SUN PHARMA USA) [Suspect]
     Route: 048
     Dates: start: 201301, end: 2013
  5. TOPIRAMATE TABLETS (SUN PHARMA USA) [Suspect]
     Indication: CONVULSION
     Route: 048
     Dates: start: 2013, end: 2013
  6. TOPIRAMATE TABLETS (SUN PHARMA USA) [Suspect]
     Route: 048
     Dates: start: 2013, end: 2013
  7. TOPIRAMATE TABLETS (SUN PHARMA USA) [Suspect]
     Indication: CONVULSION
     Route: 048
     Dates: start: 2013, end: 2013
  8. TOPIRAMATE TABLETS (SUN PHARMA USA) [Suspect]
     Route: 048
     Dates: start: 2013, end: 2013
  9. TOPIRAMATE TABLETS (SUN PHARMA USA) [Suspect]
     Indication: CONVULSION
     Route: 048
     Dates: start: 2013, end: 2013
  10. TOPIRAMATE TABLETS (SUN PHARMA USA) [Suspect]
     Route: 048
     Dates: start: 2013, end: 2013
  11. TOPIRAMATE TABLETS (SUN PHARMA USA) [Suspect]
     Indication: CONVULSION
     Route: 048
     Dates: start: 2013, end: 2013
  12. TOPIRAMATE TABLETS (SUN PHARMA USA) [Suspect]
     Route: 048
     Dates: start: 2013, end: 2013
  13. TOPIRAMATE TABLETS (SUN PHARMA USA) [Suspect]
     Indication: CONVULSION
     Route: 048
     Dates: start: 2013, end: 2013
  14. TOPIRAMATE TABLETS (SUN PHARMA USA) [Suspect]
     Route: 048
     Dates: start: 2013, end: 2013
  15. TOPIRAMATE TABLETS (SUN PHARMA USA) [Suspect]
     Indication: CONVULSION
     Route: 048
     Dates: start: 2013, end: 2013
  16. TOPIRAMATE TABLETS (SUN PHARMA USA) [Suspect]
     Route: 048
     Dates: start: 2013, end: 2013
  17. TOPIRAMATE TABLETS (SUN PHARMA USA) [Suspect]
     Indication: CONVULSION
     Route: 048
     Dates: start: 201304, end: 2013
  18. TOPIRAMATE TABLETS (SUN PHARMA USA) [Suspect]
     Route: 048
     Dates: start: 201304, end: 2013

REACTIONS (15)
  - Drug ineffective for unapproved indication [Unknown]
  - Drug ineffective [Unknown]
  - Blood creatine phosphokinase increased [Unknown]
  - Muscle spasms [Unknown]
  - Muscle spasms [Unknown]
  - Abdominal pain upper [Unknown]
  - Gastrointestinal pain [Unknown]
  - Haemorrhoidal haemorrhage [Unknown]
  - Arthralgia [Unknown]
  - Vision blurred [Unknown]
  - Blood pressure increased [Unknown]
  - Menorrhagia [Unknown]
  - Cervical polyp [Unknown]
  - Fibromyalgia [Unknown]
  - Migraine [Unknown]
